FAERS Safety Report 25488808 (Version 1)
Quarter: 2025Q2

REPORT INFORMATION
  Report Type: Spontaneous
  Country: CN (occurrence: CN)
  Receive Date: 20250627
  Receipt Date: 20250627
  Transmission Date: 20250716
  Serious: Yes (Death, Hospitalization, Other)
  Sender: POINTVIEW HOLDINGS LLC
  Company Number: CN-Pointview-000005

PATIENT
  Age: 64 Year
  Sex: Male

DRUGS (7)
  1. CYCLOSPORINE [Suspect]
     Active Substance: CYCLOSPORINE
     Indication: Lymphoproliferative disorder
     Route: 065
  2. CYCLOSPORINE [Suspect]
     Active Substance: CYCLOSPORINE
     Indication: Lymphoproliferative disorder
     Route: 065
  3. TACROLIMUS [Suspect]
     Active Substance: TACROLIMUS
     Indication: Lymphoproliferative disorder
     Route: 065
  4. PREDNISONE [Suspect]
     Active Substance: PREDNISONE
     Indication: Lymphoproliferative disorder
     Route: 048
  5. PREDNISONE [Suspect]
     Active Substance: PREDNISONE
     Indication: Lymphoproliferative disorder
     Route: 048
  6. PREDNISONE [Suspect]
     Active Substance: PREDNISONE
     Indication: Lymphoproliferative disorder
     Route: 048
  7. PREDNISONE [Suspect]
     Active Substance: PREDNISONE
     Indication: Lymphoproliferative disorder
     Route: 048

REACTIONS (11)
  - Deep vein thrombosis [Fatal]
  - Cytomegalovirus viraemia [Fatal]
  - Diarrhoea [Fatal]
  - Pneumonia [Fatal]
  - Hypoalbuminaemia [Fatal]
  - Gastrointestinal haemorrhage [Fatal]
  - Lymphoproliferative disorder [Fatal]
  - Protein-losing gastroenteropathy [Fatal]
  - Disease recurrence [Fatal]
  - Disease progression [Fatal]
  - Drug dependence [Fatal]
